FAERS Safety Report 16566965 (Version 4)
Quarter: 2019Q3

REPORT INFORMATION
  Report Type: Spontaneous
  Country: US (occurrence: US)
  Receive Date: 20190712
  Receipt Date: 20190903
  Transmission Date: 20191004
  Serious: Yes (Hospitalization)
  Sender: FDA-Public Use
  Company Number: US-PFIZER INC-2019297745

PATIENT
  Age: 80 Year
  Sex: Male

DRUGS (12)
  1. DULOXETINE. [Concomitant]
     Active Substance: DULOXETINE
     Dosage: 20 MG, 2X/DAY
  2. DOBUTAMINE [Concomitant]
     Active Substance: DOBUTAMINE HYDROCHLORIDE
     Dosage: 2.5 MCG/KG/MIN
     Dates: start: 20190705
  3. OXYCODONE [Concomitant]
     Active Substance: OXYCODONE
     Dosage: 2.5 MG EVERY 4 HOURS PRN (AS NEEDED)
     Route: 048
     Dates: start: 20190705
  4. LACTULOSE. [Concomitant]
     Active Substance: LACTULOSE
     Dosage: UNK
  5. PANTOPRAZOLE [Concomitant]
     Active Substance: PANTOPRAZOLE
     Dosage: 40 MG, DAILY
  6. MIDODRINE [Concomitant]
     Active Substance: MIDODRINE
     Dosage: UNK
  7. APIXABAN [Concomitant]
     Active Substance: APIXABAN
     Dosage: 2.5 MG, 2X/DAY
     Route: 048
     Dates: start: 20190705
  8. CALCIUM CARBONATE. [Concomitant]
     Active Substance: CALCIUM CARBONATE
     Dosage: 600 MG, 3X/DAY
  9. MIDRIN [DICHLORALPHENAZONE;ISOMETHEPTENE MUCATE;PARACETAMOL] [Concomitant]
     Active Substance: ACETAMINOPHEN\DICHLORALPHENAZONE\ISOMETHEPTENE
     Dosage: 15 MG, 3X/DAY
  10. TAFAMIDIS [Suspect]
     Active Substance: TAFAMIDIS MEGLUMINE
     Indication: CARDIAC AMYLOIDOSIS
     Dosage: 61 MG, DAILY
     Route: 048
     Dates: start: 20190422
  11. TAFAMIDIS [Suspect]
     Active Substance: TAFAMIDIS MEGLUMINE
     Indication: AMYLOIDOSIS
     Dosage: 61 MG, 1X/DAY
     Route: 048
  12. TORSEMIDE. [Concomitant]
     Active Substance: TORSEMIDE
     Dosage: 50 MG, 2X/DAY (W MEALS)
     Route: 048
     Dates: start: 20190705

REACTIONS (7)
  - Hemiparesis [Unknown]
  - Decreased appetite [Unknown]
  - Dyspnoea [Unknown]
  - Condition aggravated [Unknown]
  - Fatigue [Unknown]
  - Cardiac failure [Unknown]
  - Cerebrovascular accident [Not Recovered/Not Resolved]
